FAERS Safety Report 20106555 (Version 1)
Quarter: 2021Q4

REPORT INFORMATION
  Report Type: Spontaneous
  Country: US (occurrence: US)
  Receive Date: 20211124
  Receipt Date: 20211124
  Transmission Date: 20220303
  Serious: No
  Sender: FDA-Public Use
  Company Number: US-ORGANON-O2111USA002271

PATIENT
  Sex: Female

DRUGS (5)
  1. FOLLISTIM AQ [Suspect]
     Active Substance: FOLLITROPIN
     Indication: Infertility female
     Dosage: 300 INTERNATIONAL UNITS/0.36 MILLILITER, INJECT 225 UNITS UNDER THE SKIN DAILY WHEN DIRECTED
     Route: 058
     Dates: start: 20211008
  2. ADVIL COLD [Concomitant]
     Dosage: UNK
  3. CHORIONIC GONADOTROPIN [Concomitant]
     Active Substance: CHORIOGONADOTROPIN ALFA
     Dosage: UNK
  4. FOLIC ACID\IRON\MINERALS\VITAMINS [Concomitant]
     Active Substance: FOLIC ACID\IRON\MINERALS\VITAMINS
     Dosage: UNK
  5. FOLLISTIM AQ [Concomitant]
     Active Substance: FOLLITROPIN
     Dosage: UNK

REACTIONS (1)
  - Injection site erythema [Unknown]
